FAERS Safety Report 5003079-1 (Version None)
Quarter: 2006Q2

REPORT INFORMATION
  Report Type: 
  Country: None (occurrence: None)
  Receive Date: 20060516
  Receipt Date: 20051007
  Transmission Date: 20061013
  Serious: Yes (Death, Hospitalization, Other)
  Sender: FDA-Public Use
  Company Number: US-MERCK-0510USA06280

PATIENT
  Age: 75 Year
  Sex: Male
  Weight: 82 kg

DRUGS (1)
  1. VIOXX [Suspect]
     Indication: ARTHRALGIA
     Route: 048
     Dates: start: 20040201, end: 20040601

REACTIONS (6)
  - CEREBROVASCULAR ACCIDENT [None]
  - CORONARY ARTERY DISEASE [None]
  - DEATH [None]
  - DEPRESSION [None]
  - MYOCARDIAL INFARCTION [None]
  - SHOCK [None]
